FAERS Safety Report 17081573 (Version 1)
Quarter: 2019Q4

REPORT INFORMATION
  Report Type: Spontaneous
  Country: TR (occurrence: TR)
  Receive Date: 20191127
  Receipt Date: 20191127
  Transmission Date: 20200122
  Serious: Yes (Hospitalization)
  Sender: FDA-Public Use
  Company Number: TR-JUBILANT CADISTA PHARMACEUTICALS-2019JUB00443

PATIENT
  Age: 74 Year
  Sex: Female

DRUGS (3)
  1. UNSPECIFIED ANTI-HYPERTENSIVE [Concomitant]
     Route: 065
  2. DARIFENACIN. [Suspect]
     Active Substance: DARIFENACIN
     Indication: URINARY INCONTINENCE
     Dosage: UNK, 1X/DAY
     Route: 065
  3. UNSPECIFIED PROTON PUMP INHIIBITOR [Concomitant]
     Route: 065

REACTIONS (1)
  - Erosive oesophagitis [Recovered/Resolved]
